FAERS Safety Report 15222232 (Version 4)
Quarter: 2019Q2

REPORT INFORMATION
  Report Type: Report from Study
  Country: JP (occurrence: JP)
  Receive Date: 20180731
  Receipt Date: 20190516
  Transmission Date: 20190711
  Serious: Yes (Hospitalization, Other)
  Sender: FDA-Public Use
  Company Number: JP-JNJFOC-20180732227

PATIENT
  Age: 69 Year
  Sex: Female
  Weight: 50.2 kg

DRUGS (23)
  1. DARZALEX [Suspect]
     Active Substance: DARATUMUMAB
     Indication: PLASMA CELL MYELOMA
     Route: 041
     Dates: start: 20180315, end: 20180322
  2. DARZALEX [Suspect]
     Active Substance: DARATUMUMAB
     Indication: PLASMA CELL MYELOMA
     Route: 041
     Dates: start: 20180522, end: 20180522
  3. DOXORUBICIN [Suspect]
     Active Substance: DOXORUBICIN
     Indication: PLASMA CELL MYELOMA
     Route: 065
     Dates: start: 20070928, end: 20180227
  4. VINCRISTINE [Suspect]
     Active Substance: VINCRISTINE
     Indication: PLASMA CELL MYELOMA
     Route: 065
     Dates: start: 20070928, end: 20180227
  5. CARFILZOMIB [Suspect]
     Active Substance: CARFILZOMIB
     Indication: PLASMA CELL MYELOMA
     Route: 065
     Dates: start: 20070928, end: 20180227
  6. DARZALEX [Suspect]
     Active Substance: DARATUMUMAB
     Indication: PLASMA CELL MYELOMA
     Route: 041
     Dates: start: 20180619, end: 20181030
  7. REVLIMID [Suspect]
     Active Substance: LENALIDOMIDE
     Indication: PLASMA CELL MYELOMA
     Route: 048
     Dates: start: 20070928, end: 20180227
  8. DEXAMETHASONE. [Suspect]
     Active Substance: DEXAMETHASONE
     Indication: PLASMA CELL MYELOMA
     Route: 065
     Dates: start: 20171128, end: 20180227
  9. DARZALEX [Suspect]
     Active Substance: DARATUMUMAB
     Indication: PLASMA CELL MYELOMA
     Route: 041
     Dates: start: 20180403, end: 20180424
  10. REVLIMID [Suspect]
     Active Substance: LENALIDOMIDE
     Indication: PLASMA CELL MYELOMA
     Route: 048
     Dates: start: 20180411, end: 20180411
  11. REVLIMID [Suspect]
     Active Substance: LENALIDOMIDE
     Indication: PLASMA CELL MYELOMA
     Route: 048
     Dates: start: 20180523, end: 20180523
  12. DEXAMETHASONE. [Suspect]
     Active Substance: DEXAMETHASONE
     Indication: PLASMA CELL MYELOMA
     Route: 065
     Dates: start: 20180619, end: 20181031
  13. REVLIMID [Suspect]
     Active Substance: LENALIDOMIDE
     Indication: PLASMA CELL MYELOMA
     Route: 048
     Dates: start: 20180413, end: 20180413
  14. REVLIMID [Suspect]
     Active Substance: LENALIDOMIDE
     Indication: PLASMA CELL MYELOMA
     Route: 048
     Dates: start: 20180417, end: 20180417
  15. REVLIMID [Suspect]
     Active Substance: LENALIDOMIDE
     Indication: PLASMA CELL MYELOMA
     Route: 048
     Dates: start: 20180525, end: 20180525
  16. DARZALEX [Suspect]
     Active Substance: DARATUMUMAB
     Indication: PLASMA CELL MYELOMA
     Route: 041
     Dates: start: 20180605, end: 20180605
  17. REVLIMID [Suspect]
     Active Substance: LENALIDOMIDE
     Indication: PLASMA CELL MYELOMA
     Route: 048
     Dates: start: 20180527, end: 20180527
  18. VELCADE [Suspect]
     Active Substance: BORTEZOMIB
     Indication: PLASMA CELL MYELOMA
     Route: 065
     Dates: start: 20070928, end: 20180227
  19. POMALIDOMIDE [Suspect]
     Active Substance: POMALIDOMIDE
     Indication: PLASMA CELL MYELOMA
     Route: 048
     Dates: start: 20070928, end: 20180227
  20. DEXAMETHASONE. [Suspect]
     Active Substance: DEXAMETHASONE
     Indication: PLASMA CELL MYELOMA
     Route: 065
     Dates: start: 20180316, end: 20180612
  21. REVLIMID [Suspect]
     Active Substance: LENALIDOMIDE
     Indication: PLASMA CELL MYELOMA
     Route: 048
     Dates: start: 20180315, end: 20180329
  22. REVLIMID [Suspect]
     Active Substance: LENALIDOMIDE
     Indication: PLASMA CELL MYELOMA
     Route: 048
     Dates: start: 20180415, end: 20180415
  23. REVLIMID [Suspect]
     Active Substance: LENALIDOMIDE
     Indication: PLASMA CELL MYELOMA
     Route: 048
     Dates: start: 20180529, end: 20180529

REACTIONS (7)
  - Myelodysplastic syndrome [Not Recovered/Not Resolved]
  - Neutrophil count decreased [Recovering/Resolving]
  - Cerebral infarction [Recovering/Resolving]
  - Pneumonia [Recovered/Resolved]
  - Cerebral infarction [Recovered/Resolved]
  - Pyrexia [Recovering/Resolving]
  - Pneumonia [Recovering/Resolving]

NARRATIVE: CASE EVENT DATE: 20180329
